FAERS Safety Report 8764116 (Version 1)
Quarter: 2012Q4

REPORT INFORMATION
  Report Type: 
  Country: IL (occurrence: IL)
  Receive Date: 20120831
  Receipt Date: 20120831
  Transmission Date: 20130627
  Serious: Yes (Other)
  Sender: FDA-Public Use
  Company Number: IL-ASTRAZENECA-2012SE60912

PATIENT
  Age: 28 Year
  Sex: Female

DRUGS (5)
  1. BUPIVACAINE [Suspect]
     Indication: CAESAREAN SECTION
     Route: 037
  2. MORPHINE [Interacting]
     Indication: CAESAREAN SECTION
  3. PROPOFOL [Interacting]
     Route: 042
  4. KETAMINE [Interacting]
     Route: 042
  5. MIDAZOLAM [Interacting]

REACTIONS (2)
  - Drug interaction [Unknown]
  - Myoclonus [Recovering/Resolving]
